FAERS Safety Report 24527757 (Version 2)
Quarter: 2024Q4

REPORT INFORMATION
  Report Type: Spontaneous
  Country: US (occurrence: US)
  Receive Date: 20241021
  Receipt Date: 20241021
  Transmission Date: 20250114
  Serious: Yes (Other)
  Sender: ROCHE
  Company Number: US-ROCHE-10000105962

PATIENT
  Age: 59 Year
  Sex: Female

DRUGS (6)
  1. ATEZOLIZUMAB [Suspect]
     Active Substance: ATEZOLIZUMAB
     Indication: Small cell lung cancer metastatic
     Dosage: TWELVE-WEEK COURSE
     Route: 065
  2. ADALIMUMAB [Concomitant]
     Active Substance: ADALIMUMAB
  3. MESALAMINE [Concomitant]
     Active Substance: MESALAMINE
  4. CARBOPLATIN [Concomitant]
     Active Substance: CARBOPLATIN
     Dosage: THREE MONTH COURSE
  5. ETOPOSIDE [Concomitant]
     Active Substance: ETOPOSIDE
     Dosage: THREE MONTH COURSE
  6. INFLIXIMAB [Concomitant]
     Active Substance: INFLIXIMAB
     Dosage: THREE MONTH COURSE

REACTIONS (2)
  - Colitis [Unknown]
  - Haematochezia [Recovered/Resolved]
